FAERS Safety Report 22101434 (Version 2)
Quarter: 2023Q1

REPORT INFORMATION
  Report Type: Spontaneous
  Country: CA (occurrence: CA)
  Receive Date: 20230316
  Receipt Date: 20230328
  Transmission Date: 20230417
  Serious: Yes (Hospitalization)
  Sender: FDA-Public Use
  Company Number: CA-TEVA-2023-CA-2864942

PATIENT
  Age: 78 Year
  Sex: Female

DRUGS (11)
  1. PREDNISONE [Suspect]
     Active Substance: PREDNISONE
     Indication: Pericarditis
     Dosage: 25 MILLIGRAM DAILY; ONCE A DAY
     Route: 048
  2. PREDNISONE [Suspect]
     Active Substance: PREDNISONE
     Indication: Aspergillus infection
  3. GOLIMUMAB [Suspect]
     Active Substance: GOLIMUMAB
     Indication: Polyarthritis
     Dosage: 100 MG EVERY 8 WEEKS
     Route: 042
  4. GOLIMUMAB [Suspect]
     Active Substance: GOLIMUMAB
     Indication: Arthritis
  5. GOLIMUMAB [Suspect]
     Active Substance: GOLIMUMAB
     Indication: Rheumatoid arthritis
  6. COLCHICINE [Suspect]
     Active Substance: COLCHICINE
     Indication: Aspergillus infection
     Dosage: .6 MILLIGRAM DAILY; ONCE A DAY
     Route: 048
  7. COLCHICINE [Suspect]
     Active Substance: COLCHICINE
     Indication: Pericarditis
  8. METHOTREXATE [Suspect]
     Active Substance: METHOTREXATE
     Indication: Arthritis
     Dosage: 20 MG ONCE A WEEK
     Route: 048
  9. METHOTREXATE [Suspect]
     Active Substance: METHOTREXATE
     Indication: Rheumatoid arthritis
  10. METHOTREXATE [Suspect]
     Active Substance: METHOTREXATE
     Indication: Polyarthritis
  11. AMIODARONE [Concomitant]
     Active Substance: AMIODARONE
     Indication: Atrial fibrillation
     Route: 065

REACTIONS (3)
  - Pericarditis infective [Recovered/Resolved]
  - Bronchopulmonary aspergillosis [Recovered/Resolved]
  - Drug ineffective [Unknown]
